FAERS Safety Report 10010633 (Version 2)
Quarter: 2014Q1

REPORT INFORMATION
  Report Type: Spontaneous
  Country: TR (occurrence: TR)
  Receive Date: 20140314
  Receipt Date: 20140314
  Transmission Date: 20141002
  Serious: Yes (Other)
  Sender: FDA-Public Use
  Company Number: TR-AMGEN-TURSP2014009297

PATIENT
  Age: 38 Year
  Sex: 0

DRUGS (1)
  1. ENBREL [Suspect]
     Indication: ANKYLOSING SPONDYLITIS
     Dosage: 50 MG, WEEKLY
     Route: 065
     Dates: start: 20130923, end: 20131124

REACTIONS (2)
  - Fear [Not Recovered/Not Resolved]
  - Tuberculosis [Not Recovered/Not Resolved]
